FAERS Safety Report 24146597 (Version 1)
Quarter: 2024Q3

REPORT INFORMATION
  Report Type: Spontaneous
  Country: FR (occurrence: FR)
  Receive Date: 20240729
  Receipt Date: 20240729
  Transmission Date: 20241016
  Serious: Yes (Hospitalization)
  Sender: ACCORD
  Company Number: None

PATIENT
  Age: 50 Year
  Sex: Female
  Weight: 57.5 kg

DRUGS (16)
  1. PACLITAXEL [Suspect]
     Active Substance: PACLITAXEL
     Indication: Lung adenocarcinoma
     Dosage: 6 MG/ML, CONCENTRATE FOR SOLUTION FOR INFUSION
     Dates: start: 20240524, end: 20240524
  2. METHYLPREDNISOLONE [Concomitant]
     Active Substance: METHYLPREDNISOLONE
     Dosage: S 120 MG, POWDER FOR SOLUTION FOR INJECTION (IM-IV)
  3. SKENAN [Concomitant]
     Active Substance: MORPHINE SULFATE
     Dosage: 100 MG, PROLONGED RELEASE MICROGRANULES IN CAPSULE
  4. COVERAM [Concomitant]
     Active Substance: AMLODIPINE\PERINDOPRIL
     Dosage: 10 MG/5 MG, TABLET
  5. ACETAMINOPHEN [Concomitant]
     Active Substance: ACETAMINOPHEN
  6. FOLIC ACID [Concomitant]
     Active Substance: FOLIC ACID
  7. POLARAMINE [Concomitant]
     Active Substance: DEXCHLORPHENIRAMINE MALEATE
     Dosage: 5 MG/1 ML, SOLUTION FOR INJECTION
  8. LIDOCAINE [Concomitant]
     Active Substance: LIDOCAINE
  9. NALOXEGOL [Concomitant]
     Active Substance: NALOXEGOL
  10. LANSOPRAZOLE [Concomitant]
     Active Substance: LANSOPRAZOLE
  11. MORPHINE SULFATE [Concomitant]
     Active Substance: MORPHINE SULFATE
  12. RANITIDINE HYDROCHLORIDE [Concomitant]
     Active Substance: RANITIDINE HYDROCHLORIDE
  13. KETOPROFEN [Concomitant]
     Active Substance: KETOPROFEN
  14. MICROLAX [Concomitant]
  15. PREGABALIN [Concomitant]
     Active Substance: PREGABALIN
  16. DIAZEPAM [Concomitant]
     Active Substance: DIAZEPAM

REACTIONS (3)
  - Paraesthesia oral [Recovered/Resolved]
  - Tachypnoea [Recovered/Resolved]
  - Erythema [Recovered/Resolved]

NARRATIVE: CASE EVENT DATE: 20240524
